FAERS Safety Report 20748605 (Version 5)
Quarter: 2022Q2

REPORT INFORMATION
  Report Type: Report from Study
  Country: US (occurrence: US)
  Receive Date: 20220426
  Receipt Date: 20220628
  Transmission Date: 20220721
  Serious: Yes (Death, Hospitalization, Other)
  Sender: FDA-Public Use
  Company Number: US-CELGENE-USA-20211201975

PATIENT
  Age: 52 Year
  Sex: Male
  Weight: 131.3 kg

DRUGS (6)
  1. ROMIDEPSIN [Suspect]
     Active Substance: ROMIDEPSIN
     Indication: Allogenic stem cell transplantation
     Dosage: 20.8 MILLIGRAM
     Route: 042
     Dates: start: 20210310, end: 20210313
  2. ROMIDEPSIN [Suspect]
     Active Substance: ROMIDEPSIN
     Route: 042
     Dates: start: 20210618
  3. ROMIDEPSIN [Suspect]
     Active Substance: ROMIDEPSIN
     Route: 042
     Dates: start: 20210813
  4. ROMIDEPSIN [Suspect]
     Active Substance: ROMIDEPSIN
     Route: 042
     Dates: start: 20211029
  5. FLUDARABINE [Concomitant]
     Active Substance: FLUDARABINE PHOSPHATE
     Indication: Product used for unknown indication
     Route: 065
     Dates: start: 20210310, end: 20210313
  6. BUSULFAN [Concomitant]
     Active Substance: BUSULFAN
     Indication: Product used for unknown indication
     Dates: start: 20210310, end: 20210313

REACTIONS (2)
  - Graft versus host disease in gastrointestinal tract [Fatal]
  - CD34 cell count decreased [Unknown]

NARRATIVE: CASE EVENT DATE: 20211008
